FAERS Safety Report 24054583 (Version 1)
Quarter: 2024Q3

REPORT INFORMATION
  Report Type: Report from Study
  Country: AR (occurrence: AR)
  Receive Date: 20240705
  Receipt Date: 20240705
  Transmission Date: 20241016
  Serious: Yes (Death, Hospitalization)
  Sender: BIOGEN
  Company Number: AR-BIOGEN-2024BI01272035

PATIENT
  Sex: Female

DRUGS (1)
  1. SPINRAZA [Suspect]
     Active Substance: NUSINERSEN
     Indication: Spinal muscular atrophy
     Dosage: LAST APPPLICATION ON 03APR2024
     Route: 050
     Dates: start: 20191226, end: 20240403

REACTIONS (5)
  - Cardio-respiratory arrest [Fatal]
  - Oxygen saturation decreased [Unknown]
  - Bacterial infection [Unknown]
  - Pyrexia [Unknown]
  - Secretion discharge [Unknown]

NARRATIVE: CASE EVENT DATE: 20240101
